FAERS Safety Report 8209240-7 (Version None)
Quarter: 2012Q1

REPORT INFORMATION
  Report Type: 
  Country: None (occurrence: None)
  Receive Date: 20120314
  Receipt Date: 20120312
  Transmission Date: 20120608
  Serious: Yes (Other)
  Sender: FDA-Public Use
  Company Number: ES-BAYER-2012-017694

PATIENT
  Age: 63 Year
  Sex: Female

DRUGS (1)
  1. GADAVIST [Suspect]
     Dosage: 10 ML, UNK
     Route: 042
     Dates: start: 20120217, end: 20120217

REACTIONS (6)
  - PRESYNCOPE [None]
  - LARYNGEAL OEDEMA [None]
  - ACUTE RESPIRATORY FAILURE [None]
  - NAUSEA [None]
  - NERVOUSNESS [None]
  - MALAISE [None]
